FAERS Safety Report 13399111 (Version 1)
Quarter: 2017Q2

REPORT INFORMATION
  Report Type: Spontaneous
  Country: GB (occurrence: GB)
  Receive Date: 20170404
  Receipt Date: 20170404
  Transmission Date: 20170830
  Serious: Yes (Other)
  Sender: FDA-Public Use
  Company Number: GB-LUPIN (EUROPE) LIMITED-2017-00600

PATIENT
  Sex: Male

DRUGS (1)
  1. SERTRALINE 50 MG TABLETS [Suspect]
     Active Substance: SERTRALINE HYDROCHLORIDE
     Indication: DEPRESSION
     Dosage: 50 MG,QD,
     Route: 065
     Dates: start: 20161010, end: 20170112

REACTIONS (2)
  - Drug ineffective [Unknown]
  - Drug withdrawal syndrome [Recovered/Resolved]
